FAERS Safety Report 14080950 (Version 4)
Quarter: 2018Q1

REPORT INFORMATION
  Report Type: Spontaneous
  Country: ES (occurrence: ES)
  Receive Date: 20171012
  Receipt Date: 20180103
  Transmission Date: 20180508
  Serious: Yes (Death, Other)
  Sender: FDA-Public Use
  Company Number: ES-REGENERON PHARMACEUTICALS, INC.-2017-24089

PATIENT

DRUGS (1)
  1. EYLEA [Suspect]
     Active Substance: AFLIBERCEPT
     Indication: NEOVASCULAR AGE-RELATED MACULAR DEGENERATION
     Dosage: UNK, RECEIVED A TOTAL OF 22 DOSES
     Route: 031
     Dates: start: 20140908, end: 20170724

REACTIONS (1)
  - Peripheral embolism [Fatal]

NARRATIVE: CASE EVENT DATE: 201708
